FAERS Safety Report 20532471 (Version 1)
Quarter: 2022Q1

REPORT INFORMATION
  Report Type: Spontaneous
  Country: US (occurrence: US)
  Receive Date: 20220301
  Receipt Date: 20220301
  Transmission Date: 20220424
  Serious: Yes (Other)
  Sender: FDA-Public Use
  Company Number: US-AMERICAN REGENT INC-2022000484

PATIENT
  Age: 38 Year
  Sex: Female
  Weight: 100 kg

DRUGS (8)
  1. VENOFER [Suspect]
     Active Substance: IRON SUCROSE
     Indication: Iron deficiency anaemia
     Dosage: 300 MG IN SODIUM CHLORIDE 0.9 % 250 ML
     Route: 042
     Dates: start: 20160901, end: 20160901
  2. VENOFER [Suspect]
     Active Substance: IRON SUCROSE
     Indication: Anaemia of pregnancy
     Dosage: 300 MG IN SODIUM CHLORIDE 0.9 % 250 ML
     Route: 042
     Dates: start: 20160906, end: 20160906
  3. VENOFER [Suspect]
     Active Substance: IRON SUCROSE
     Dosage: 300 MG IN SODIUM CHLORIDE 0.9 % 250 ML
     Route: 042
     Dates: start: 20160908, end: 20160908
  4. VENOFER [Suspect]
     Active Substance: IRON SUCROSE
     Dosage: 300 MG IN SODIUM CHLORIDE 0.9 % 250 ML
     Route: 042
     Dates: start: 20160912, end: 20160912
  5. VENOFER [Suspect]
     Active Substance: IRON SUCROSE
     Dosage: 300 MG IN SODIUM CHLORIDE 0.9 % 250 ML
     Route: 042
     Dates: start: 20160915, end: 20160915
  6. VENOFER [Suspect]
     Active Substance: IRON SUCROSE
     Dosage: 300 MG IN SODIUM CHLORIDE 0.9 % 250 ML
     Route: 042
     Dates: start: 20160919, end: 20160919
  7. VENOFER [Suspect]
     Active Substance: IRON SUCROSE
     Dosage: 300 MG IN SODIUM CHLORIDE 0.9 % 250 ML
     Route: 042
     Dates: start: 20160922, end: 20160922
  8. VENOFER [Suspect]
     Active Substance: IRON SUCROSE
     Dosage: 300 MG IN SODIUM CHLORIDE 0.9 % 250 ML
     Route: 042
     Dates: start: 20160927, end: 20160927

REACTIONS (5)
  - Foetal death [Not Recovered/Not Resolved]
  - Umbilical cord thrombosis [Not Recovered/Not Resolved]
  - Type 2 diabetes mellitus [Recovered/Resolved]
  - Gestational hypertension [Recovered/Resolved]
  - Maternal exposure during pregnancy [Recovered/Resolved]

NARRATIVE: CASE EVENT DATE: 20160901
